FAERS Safety Report 4763416-X (Version None)
Quarter: 2005Q3

REPORT INFORMATION
  Report Type: 
  Country: None (occurrence: None)
  Receive Date: 20050901
  Receipt Date: 20050711
  Transmission Date: 20060218
  Serious: No
  Sender: FDA-Public Use
  Company Number: 200511376BWH

PATIENT
  Age: 82 Year
  Sex: Male

DRUGS (2)
  1. LEVITRA [Suspect]
     Dosage: 20 MG, TOTAL DAILY, ORAL
     Route: 048
     Dates: start: 20050101, end: 20050601
  2. DIOVAN [Concomitant]

REACTIONS (5)
  - DRY EYE [None]
  - EYE DISORDER [None]
  - EYE IRRITATION [None]
  - VISION BLURRED [None]
  - VISUAL ACUITY REDUCED [None]
